FAERS Safety Report 8552624-8 (Version None)
Quarter: 2012Q3

REPORT INFORMATION
  Report Type: 
  Country: None (occurrence: None)
  Receive Date: 20120731
  Receipt Date: 20120724
  Transmission Date: 20120928
  Serious: No
  Sender: FDA-Public Use
  Company Number: US-PFIZER INC-2012179079

PATIENT
  Sex: Female

DRUGS (7)
  1. PREMARIN [Suspect]
     Indication: VULVOVAGINAL PAIN
  2. PREMARIN [Suspect]
     Indication: VULVOVAGINAL DRYNESS
  3. SYNTHROID [Concomitant]
     Dosage: UNK
  4. PREMARIN [Suspect]
     Indication: INSOMNIA
  5. PREMARIN [Suspect]
     Indication: HOT FLUSH
     Dosage: 0.9 MG, 1X/DAY
     Route: 048
     Dates: start: 20110101, end: 20110101
  6. PREMARIN [Suspect]
     Indication: MENOPAUSE
     Dosage: 1.25 MG, 1X/DAY
     Route: 048
     Dates: end: 20110101
  7. PREMARIN [Suspect]
     Indication: NIGHT SWEATS

REACTIONS (2)
  - HOT FLUSH [None]
  - INSOMNIA [None]
